FAERS Safety Report 6380483-0 (Version None)
Quarter: 2009Q3

REPORT INFORMATION
  Report Type: 
  Country: None (occurrence: None)
  Receive Date: 20090921
  Receipt Date: 20090908
  Transmission Date: 20100115
  Serious: Yes (Other)
  Sender: FDA-Public Use
  Company Number: MPS1-1000225

PATIENT
  Age: 11 Year
  Sex: Male
  Weight: 21.5 kg

DRUGS (1)
  1. ALDURAZYME [Suspect]
     Indication: MUCOPOLYSACCHARIDOSIS I
     Dosage: 1.16 MG/KG, Q2W, 0.58 MG/KG, QW
     Dates: start: 20050101, end: 20090427

REACTIONS (5)
  - HYDROCEPHALUS [None]
  - HYPERCAPNIA [None]
  - MACROGLOSSIA [None]
  - OBSTRUCTIVE AIRWAYS DISORDER [None]
  - OXYGEN SATURATION DECREASED [None]
